FAERS Safety Report 5484747-4 (Version None)
Quarter: 2007Q4

REPORT INFORMATION
  Report Type: 
  Country: None (occurrence: None)
  Receive Date: 20071012
  Receipt Date: 20071004
  Transmission Date: 20080405
  Serious: Yes (Other)
  Sender: FDA-Public Use
  Company Number: NZ-PFIZER INC-2007083885

PATIENT
  Age: 51 Year
  Sex: Female

DRUGS (7)
  1. LIPITOR [Suspect]
     Indication: BLOOD CHOLESTEROL INCREASED
     Route: 048
  2. NORTRIPTYLINE HCL [Concomitant]
  3. LOSEC [Concomitant]
  4. TEGRETOL [Concomitant]
     Indication: CONVULSION
  5. RAMIPRIL [Concomitant]
     Indication: TACHYCARDIA
  6. PANADOL [Concomitant]
     Indication: FIBROMYALGIA
  7. ALL OTHER THERAPEUTIC PRODUCTS [Concomitant]

REACTIONS (1)
  - BREAST PAIN [None]
